FAERS Safety Report 16373361 (Version 2)
Quarter: 2019Q2

REPORT INFORMATION
  Report Type: Report from Study
  Country: US (occurrence: US)
  Receive Date: 20190530
  Receipt Date: 20190611
  Transmission Date: 20190711
  Serious: No
  Sender: FDA-Public Use
  Company Number: US-SA-2019SA143714

PATIENT
  Age: 34 Year
  Sex: Male
  Weight: 94 kg

DRUGS (1)
  1. DUPILUMAB [Suspect]
     Active Substance: DUPILUMAB
     Indication: DERMATITIS ATOPIC
     Dosage: 300 MG, QOW
     Dates: start: 20190410

REACTIONS (6)
  - Ocular hyperaemia [Recovering/Resolving]
  - Eye discharge [Recovering/Resolving]
  - Eye infection [Not Recovered/Not Resolved]
  - Dry eye [Not Recovered/Not Resolved]
  - Eye swelling [Not Recovered/Not Resolved]
  - Eye pruritus [Recovering/Resolving]

NARRATIVE: CASE EVENT DATE: 201905
